FAERS Safety Report 5973491-2 (Version None)
Quarter: 2008Q4

REPORT INFORMATION
  Report Type: 
  Country: None (occurrence: None)
  Receive Date: 20081201
  Receipt Date: 20081121
  Transmission Date: 20090506
  Serious: Yes (Hospitalization)
  Sender: FDA-Public Use
  Company Number: CA-ELI_LILLY_AND_COMPANY-CA200811005463

PATIENT
  Age: 80 Year
  Sex: Female

DRUGS (9)
  1. FORTEO [Suspect]
     Indication: OSTEOPOROSIS
     Dosage: 20 UG, DAILY (1/D)
     Route: 058
     Dates: start: 20081105, end: 20081112
  2. SENOKOT [Concomitant]
  3. RAMIPRIL [Concomitant]
  4. TRAZODONE HCL [Concomitant]
  5. DILAUDID [Concomitant]
  6. DOCUSATE SODIUM [Concomitant]
  7. CALCIUM [Concomitant]
  8. VITAMIN D [Concomitant]
  9. ASCORBIC ACID [Concomitant]

REACTIONS (2)
  - LUMBAR VERTEBRAL FRACTURE [None]
  - THORACIC VERTEBRAL FRACTURE [None]
